FAERS Safety Report 8141112-9 (Version None)
Quarter: 2012Q1

REPORT INFORMATION
  Report Type: 
  Country: None (occurrence: None)
  Receive Date: 20120216
  Receipt Date: 20120207
  Transmission Date: 20120608
  Serious: Yes (Other)
  Sender: FDA-Public Use
  Company Number: JP-ASTRAZENECA-2012SE09870

PATIENT
  Age: 49 Year
  Sex: Male

DRUGS (5)
  1. BASEN OD [Concomitant]
     Indication: DIABETES MELLITUS
     Dosage: 0.2 MG NUMBER OF SEPARATE DOSAGES UNKNOWN DAILY
     Route: 065
     Dates: start: 20110905
  2. AMLODIPINE [Concomitant]
     Indication: HYPERTENSION
     Dosage: 5 MG NUMBER OF SEPARATE DOSAGES UNKNOWN DAILY
     Route: 065
     Dates: start: 20101225
  3. CRESTOR [Suspect]
     Route: 048
     Dates: start: 20111208
  4. MICARDIS [Concomitant]
     Indication: HYPERTENSION
     Dosage: 40 MG NUMBER OF SEPARATE DOSAGES UNKNOWN DAILY
     Route: 048
     Dates: start: 20101225
  5. LANTUS [Concomitant]
     Indication: DIABETES MELLITUS
     Dosage: 8 IU NUMBER OF SEPARATE DOSAGES UNKNOWN DAILY
     Route: 065
     Dates: start: 20110915

REACTIONS (2)
  - BLOOD CREATINE PHOSPHOKINASE INCREASED [None]
  - WHITE BLOOD CELL COUNT INCREASED [None]
